FAERS Safety Report 15516688 (Version 1)
Quarter: 2018Q4

REPORT INFORMATION
  Report Type: Spontaneous
  Country: US (occurrence: US)
  Receive Date: 20181017
  Receipt Date: 20181017
  Transmission Date: 20190205
  Serious: No
  Sender: FDA-Public Use
  Company Number: US-DUCHESNAY INC.-2056285

PATIENT
  Age: 48 Year
  Sex: Female

DRUGS (3)
  1. LEVOTHYROXINE. [Concomitant]
     Active Substance: LEVOTHYROXINE
  2. AMLODIPINE/BENAZEPRIL [Concomitant]
     Active Substance: AMLODIPINE BESYLATE\BENAZEPRIL HYDROCHLORIDE
  3. OSPHENA [Suspect]
     Active Substance: OSPEMIFENE
     Route: 048
     Dates: start: 20180208, end: 20180926

REACTIONS (1)
  - Arthralgia [Recovered/Resolved]

NARRATIVE: CASE EVENT DATE: 20180917
